FAERS Safety Report 5203747-2 (Version None)
Quarter: 2007Q1

REPORT INFORMATION
  Report Type: 
  Country: None (occurrence: None)
  Receive Date: 20070110
  Receipt Date: 20070103
  Transmission Date: 20070707
  Serious: Yes (Hospitalization, Disabling, Other)
  Sender: FDA-Public Use
  Company Number: DE-BRISTOL-MYERS SQUIBB COMPANY-13567706

PATIENT
  Age: 52 Year
  Sex: Female
  Weight: 48 kg

DRUGS (10)
  1. CARBOPLATIN [Suspect]
     Indication: BREAST CANCER
     Dates: start: 20061017, end: 20061017
  2. PEMETREXED DISODIUM [Suspect]
     Indication: BREAST CANCER
     Dates: start: 20061017
  3. LAFOL [Concomitant]
     Dates: start: 20060824
  4. DEXAMETHASONE [Concomitant]
     Dates: start: 20061016, end: 20061018
  5. PREGABALIN [Concomitant]
     Dates: start: 20060928
  6. COMBAREN [Concomitant]
     Dates: start: 20060928
  7. VALORON [Concomitant]
     Dates: start: 20060928
  8. EMEND [Concomitant]
     Dates: start: 20061017, end: 20061019
  9. TRAMADOL HCL [Concomitant]
     Dates: start: 20060928
  10. NEXIUM [Concomitant]
     Dates: start: 20060928

REACTIONS (6)
  - DIPLOPIA [None]
  - MALIGNANT PLEURAL EFFUSION [None]
  - METASTASES TO MENINGES [None]
  - PANCYTOPENIA [None]
  - PUPILS UNEQUAL [None]
  - THROMBOCYTOPENIA [None]
